FAERS Safety Report 17617347 (Version 1)
Quarter: 2020Q2

REPORT INFORMATION
  Report Type: Spontaneous
  Country: CH (occurrence: CH)
  Receive Date: 20200402
  Receipt Date: 20200402
  Transmission Date: 20200713
  Serious: Yes (Congenital Anomaly, Other)
  Sender: FDA-Public Use
  Company Number: CH-SA-2020SA074745

PATIENT
  Age: 31 Year
  Sex: Female

DRUGS (2)
  1. COAPROVEL [Suspect]
     Active Substance: HYDROCHLOROTHIAZIDE\IRBESARTAN
     Indication: ESSENTIAL HYPERTENSION
     Dosage: 1 DF, QD
     Route: 048
     Dates: start: 200204
  2. ORLISTAT. [Suspect]
     Active Substance: ORLISTAT
     Indication: OBESITY
     Dosage: 120 MG, QD
     Route: 048
     Dates: start: 200202

REACTIONS (2)
  - Exposure during pregnancy [Unknown]
  - Talipes [Unknown]

NARRATIVE: CASE EVENT DATE: 20020908
